FAERS Safety Report 5948291-X (Version None)
Quarter: 2008Q4

REPORT INFORMATION
  Report Type: 
  Country: None (occurrence: None)
  Receive Date: 20081021
  Receipt Date: 20080422
  Transmission Date: 20090506
  Serious: Yes (Other)
  Sender: FDA-Public Use
  Company Number: US-WYE-H03801408

PATIENT
  Age: 58 Year

DRUGS (7)
  1. PREMARIN [Suspect]
     Indication: HORMONE THERAPY
     Dosage: ORAL
     Route: 048
     Dates: start: 19940101, end: 20040101
  2. CYCRIN [Suspect]
     Indication: HORMONE THERAPY
     Dosage: ORAL
     Route: 048
     Dates: start: 19980101, end: 19990101
  3. ESTRACE [Suspect]
     Indication: HORMONE THERAPY
     Dosage: ORAL
     Route: 048
     Dates: start: 19930101, end: 19940101
  4. ESTRADIOL [Suspect]
     Indication: HORMONE THERAPY
     Dosage: ORAL
     Route: 048
     Dates: start: 19930101, end: 19940101
  5. ESTRATEST [Suspect]
     Indication: HORMONE THERAPY
     Dosage: ORAL
     Route: 048
     Dates: start: 19940101, end: 20040101
  6. MEDROXYPROGESTERONE [Suspect]
     Indication: HORMONE THERAPY
     Dosage: ORAL
     Route: 048
     Dates: start: 19990101, end: 20040101
  7. PROVERA [Suspect]
     Indication: HORMONE THERAPY
     Dosage: ORAL
     Route: 048
     Dates: start: 19930101, end: 20040101

REACTIONS (1)
  - BREAST CANCER [None]
